FAERS Safety Report 22392446 (Version 2)
Quarter: 2023Q2

REPORT INFORMATION
  Report Type: Spontaneous
  Country: JP (occurrence: JP)
  Receive Date: 20230601
  Receipt Date: 20230612
  Transmission Date: 20230722
  Serious: Yes (Other)
  Sender: FDA-Public Use
  Company Number: JP-AMGEN-JPNSP2022218772

PATIENT
  Sex: Male

DRUGS (3)
  1. REPATHA [Suspect]
     Active Substance: EVOLOCUMAB
     Indication: Low density lipoprotein increased
     Dosage: 140 MILLIGRAM, Q2WK
     Route: 058
  2. REPATHA [Suspect]
     Active Substance: EVOLOCUMAB
     Dosage: 140 MILLIGRAM, Q3WK
     Route: 058
  3. ASPIRIN [Concomitant]
     Active Substance: ASPIRIN

REACTIONS (7)
  - Cerebral haemorrhage [Unknown]
  - Low density lipoprotein decreased [Unknown]
  - Epistaxis [Unknown]
  - Off label use [Unknown]
  - Dizziness [Unknown]
  - Low density lipoprotein increased [Unknown]
  - Administration site pain [Unknown]
